FAERS Safety Report 9841409 (Version 1)
Quarter: 2013Q4

REPORT INFORMATION
  Report Type: Spontaneous
  Country: US (occurrence: None)
  Receive Date: 20131219
  Receipt Date: 20131219
  Transmission Date: 20140711
  Serious: Yes (Other)
  Sender: FDA-Public Use
  Company Number: 163-20785-12103389

PATIENT
  Age: 76 Year
  Sex: Female

DRUGS (7)
  1. THALOMID [Suspect]
     Indication: MYELODYSPLASTIC SYNDROME
     Dosage: 28 IN 28 D
     Route: 048
     Dates: start: 20121009
  2. ZANTAC [Concomitant]
  3. LEVOTHYROXINE [Concomitant]
  4. CLORAZEPATE DIPOTASSIUM [Concomitant]
  5. COMBIGAN [Concomitant]
  6. IRON [Concomitant]
  7. TYLENOL [Concomitant]

REACTIONS (2)
  - Drug ineffective [None]
  - Oedema peripheral [None]
